FAERS Safety Report 5305830-X (Version None)
Quarter: 2007Q2

REPORT INFORMATION
  Report Type: 
  Country: None (occurrence: None)
  Receive Date: 20070420
  Receipt Date: 20070420
  Transmission Date: 20071010
  Serious: Yes (Hospitalization)
  Sender: FDA-Public Use
  Company Number: None

PATIENT
  Age: 55 Year
  Sex: Male

DRUGS (1)
  1. ARIXTRA [Suspect]
     Indication: SURGERY
     Dosage: 2.5MG EVERY DAY SQ
     Route: 058
     Dates: start: 20070306, end: 20070308

REACTIONS (3)
  - GASTRIC HAEMORRHAGE [None]
  - HAEMOGLOBIN DECREASED [None]
  - REFUSAL OF TREATMENT BY PATIENT [None]
